FAERS Safety Report 9789201 (Version 1)
Quarter: 2013Q4

REPORT INFORMATION
  Report Type: Spontaneous
  Country: PT (occurrence: PT)
  Receive Date: 20131230
  Receipt Date: 20131230
  Transmission Date: 20140711
  Serious: Yes (Other)
  Sender: FDA-Public Use
  Company Number: PT-ACTAVIS-2013-23458

PATIENT
  Age: 71 Year
  Sex: Female
  Weight: 55 kg

DRUGS (1)
  1. VINORELBINE [Suspect]
     Indication: BREAST CANCER
     Dosage: 30 MG/M2, 1/ THREE WEEKS
     Route: 042
     Dates: start: 20131204, end: 20131204

REACTIONS (3)
  - Tachypnoea [Recovered/Resolved]
  - Back pain [Recovered/Resolved]
  - Erythema [Recovered/Resolved]
